FAERS Safety Report 8313396-5 (Version None)
Quarter: 2012Q2

REPORT INFORMATION
  Report Type: 
  Country: None (occurrence: None)
  Receive Date: 20120426
  Receipt Date: 20120419
  Transmission Date: 20120825
  Serious: Yes (Death, Hospitalization)
  Sender: FDA-Public Use
  Company Number: PHHY2012BR033733

PATIENT
  Sex: Female

DRUGS (3)
  1. DIOVAN HCT [Concomitant]
     Dosage: 1 DF (160/25MG), DAILY
     Dates: start: 20110201
  2. DIOVAN HCT [Concomitant]
     Dosage: 0.5 DF (160/25 MG), DAILY
     Dates: start: 20110201
  3. EXELON [Suspect]
     Dosage: 4.6 MG, PER DAY
     Route: 062

REACTIONS (1)
  - PNEUMONIA [None]
